FAERS Safety Report 6425879-3 (Version None)
Quarter: 2009Q4

REPORT INFORMATION
  Report Type: 
  Country: None (occurrence: None)
  Receive Date: 20091030
  Receipt Date: 20091016
  Transmission Date: 20100525
  Serious: Yes (Hospitalization)
  Sender: FDA-Public Use
  Company Number: 2009AC000294

PATIENT
  Age: 82 Year
  Sex: Female

DRUGS (14)
  1. DIGOXIN [Suspect]
     Dosage: 0.25 MG; QD; PO
     Route: 048
     Dates: start: 20080225
  2. COUMADIN [Concomitant]
  3. ASPIRIN [Concomitant]
  4. CARTIA XT [Concomitant]
  5. CLONIDINE [Concomitant]
  6. HYDROCHLOROTHIAZIDE [Concomitant]
  7. VYTORIN [Concomitant]
  8. FISH OIL [Concomitant]
  9. THYROID TAB [Concomitant]
  10. PREDNISONE [Concomitant]
  11. NEURO B-12 [Concomitant]
  12. CALCIUM [Concomitant]
  13. AMBIEN [Concomitant]
  14. ULTRAM [Concomitant]

REACTIONS (18)
  - ATRIAL FIBRILLATION [None]
  - BLOOD PRESSURE FLUCTUATION [None]
  - CARDIAC FLUTTER [None]
  - CONFUSIONAL STATE [None]
  - ECONOMIC PROBLEM [None]
  - EMOTIONAL DISORDER [None]
  - HYPOTENSION [None]
  - INJURY [None]
  - OEDEMA [None]
  - PERIPHERAL VASCULAR DISORDER [None]
  - POOR QUALITY DRUG ADMINISTERED [None]
  - PRODUCT QUALITY ISSUE [None]
  - RASH [None]
  - SURGERY [None]
  - THERAPEUTIC AGENT TOXICITY [None]
  - TRANSIENT ISCHAEMIC ATTACK [None]
  - UNEVALUABLE EVENT [None]
  - VISION BLURRED [None]
